FAERS Safety Report 18027753 (Version 2)
Quarter: 2021Q2

REPORT INFORMATION
  Report Type: Spontaneous
  Country: HK (occurrence: HK)
  Receive Date: 20200716
  Receipt Date: 20210628
  Transmission Date: 20210717
  Serious: Yes (Other)
  Sender: FDA-Public Use
  Company Number: HK-TEVA-2020-HK-1799999

PATIENT
  Age: 66 Year
  Sex: Male

DRUGS (1)
  1. PREDNISOLONE. [Suspect]
     Active Substance: PREDNISOLONE
     Indication: IMMUNOSUPPRESSANT DRUG THERAPY
     Dosage: 7.5 MILLIGRAM DAILY;
     Route: 065

REACTIONS (3)
  - Cytomegalovirus chorioretinitis [Recovering/Resolving]
  - Uveitis [Unknown]
  - Retinal degeneration [Unknown]
